FAERS Safety Report 5463945-X (Version None)
Quarter: 2007Q3

REPORT INFORMATION
  Report Type: 
  Country: None (occurrence: None)
  Receive Date: 20070921
  Receipt Date: 20070910
  Transmission Date: 20080115
  Serious: Yes (Other)
  Sender: FDA-Public Use
  Company Number: US-KINGPHARMUSA00001-K200701162

PATIENT

DRUGS (4)
  1. KETALAR [Suspect]
     Indication: INDUCTION OF ANAESTHESIA
     Dosage: .5 MG/KG, UNK
     Route: 042
  2. KETALAR [Suspect]
     Dosage: 40 TO 50 UG/KG, MIN
  3. FENTANYL [Concomitant]
     Dosage: 2 UG/KG, UNK
  4. RECOMBINANT HUMAN ACID X-GLUCOSIDASE [Concomitant]
     Dosage: 10 MG/KG-1, QW
     Route: 042

REACTIONS (3)
  - BLOOD PRESSURE DIASTOLIC DECREASED [None]
  - ELECTROCARDIOGRAM ST-T SEGMENT DEPRESSION [None]
  - HEART RATE INCREASED [None]
